FAERS Safety Report 5244025-5 (Version None)
Quarter: 2007Q1

REPORT INFORMATION
  Report Type: 
  Country: None (occurrence: None)
  Receive Date: 20061201
  Receipt Date: 20060807
  Transmission Date: 20070707
  Serious: No
  Sender: FDA-Public Use
  Company Number: 2006PV019013

PATIENT
  Age: 67 Year
  Sex: Female
  Weight: 86.637 kg

DRUGS (10)
  1. BYETTA [Suspect]
     Indication: DIABETES MELLITUS NON-INSULIN-DEPENDENT
     Dosage: 5 MCG; BID; SC
     Route: 058
     Dates: start: 20060528
  2. METFORMIN [Concomitant]
  3. ACTOS [Concomitant]
  4. ASPIRIN ^BAYER^ /USA/ [Concomitant]
  5. VITAMIN E /001105/ [Concomitant]
  6. MULTIVITAMIN WITH B [Concomitant]
  7. OMEGA 3 FATTY ACIDS [Concomitant]
  8. VYTORIN [Concomitant]
  9. COREG [Concomitant]
  10. ACEON [Concomitant]

REACTIONS (3)
  - INJECTION SITE BRUISING [None]
  - THROAT TIGHTNESS [None]
  - WEIGHT DECREASED [None]
